FAERS Safety Report 19550706 (Version 1)
Quarter: 2021Q3

REPORT INFORMATION
  Report Type: Spontaneous
  Country: US (occurrence: US)
  Receive Date: 20210715
  Receipt Date: 20210715
  Transmission Date: 20211014
  Serious: No
  Sender: FDA-Public Use
  Company Number: US-SA-2021SA228510

PATIENT
  Sex: Female

DRUGS (2)
  1. LANTUS [Concomitant]
     Active Substance: INSULIN GLARGINE
     Dosage: UNK
     Route: 065
  2. TOUJEO [Suspect]
     Active Substance: INSULIN GLARGINE
     Dosage: 45 IU, QD (23 UNITS IN ONE BUTT CHEEK AND 22 UNITS IN THE OTHER BUTT CHEEK)
     Route: 065

REACTIONS (2)
  - Wrong technique in product usage process [Unknown]
  - Injection site haemorrhage [Unknown]
